FAERS Safety Report 4493127-X (Version None)
Quarter: 2004Q4

REPORT INFORMATION
  Report Type: 
  Country: None (occurrence: None)
  Receive Date: 20041104
  Receipt Date: 20041025
  Transmission Date: 20050328
  Serious: Yes (Hospitalization)
  Sender: FDA-Public Use
  Company Number: US-BRISTOL-MYERS SQUIBB COMPANY-12743100

PATIENT
  Age: 71 Year
  Sex: Male
  Weight: 72 kg

DRUGS (5)
  1. KENALOG-40 [Suspect]
     Indication: BACK PAIN
     Route: 051
     Dates: start: 20021208, end: 20021208
  2. LASIX [Concomitant]
     Dates: start: 20011001
  3. COUMADIN [Concomitant]
     Dates: start: 20011001
  4. EXTRA STRENGTH TYLENOL [Concomitant]
     Dates: start: 20011001
  5. KLONOPIN [Concomitant]
     Dates: start: 20011001

REACTIONS (6)
  - HYPOAESTHESIA [None]
  - HYPOTENSION [None]
  - LOSS OF CONSCIOUSNESS [None]
  - OPTIC NERVE DISORDER [None]
  - PARALYSIS [None]
  - VISUAL ACUITY REDUCED [None]
